FAERS Safety Report 22359309 (Version 2)
Quarter: 2023Q2

REPORT INFORMATION
  Report Type: Spontaneous
  Country: JP (occurrence: JP)
  Receive Date: 20230524
  Receipt Date: 20230617
  Transmission Date: 20230721
  Serious: Yes (Hospitalization, Other)
  Sender: FDA-Public Use
  Company Number: JP-AUROBINDO-AUR-APL-2023-038369

PATIENT
  Age: 9 Decade
  Sex: Male

DRUGS (3)
  1. PRALATREXATE [Suspect]
     Active Substance: PRALATREXATE
     Indication: Angioimmunoblastic T-cell lymphoma recurrent
     Dosage: 30 MG/M2, EVERY WEEK
     Route: 042
     Dates: start: 20230120
  2. PRALATREXATE [Suspect]
     Active Substance: PRALATREXATE
     Dosage: 30 MG/M2, EVERY WEEK
     Route: 042
  3. LEUCOVORIN [Concomitant]
     Active Substance: LEUCOVORIN
     Indication: Product used for unknown indication
     Dosage: UNK
     Route: 065

REACTIONS (4)
  - Immobile [Recovering/Resolving]
  - Pyrexia [Recovered/Resolved]
  - Chills [Recovering/Resolving]
  - Product dose omission issue [Unknown]

NARRATIVE: CASE EVENT DATE: 20230428
